FAERS Safety Report 23674192 (Version 1)
Quarter: 2024Q1

REPORT INFORMATION
  Report Type: Other
  Country: JP (occurrence: None)
  Receive Date: 20240326
  Receipt Date: 20240326
  Transmission Date: 20240410
  Serious: Yes (Other)
  Sender: FDA-Public Use
  Company Number: JP-ROCHE-3529934

PATIENT

DRUGS (2)
  1. ATEZOLIZUMAB [Suspect]
     Active Substance: ATEZOLIZUMAB
     Indication: Hepatocellular carcinoma
     Route: 042
  2. BEVACIZUMAB [Suspect]
     Active Substance: BEVACIZUMAB
     Indication: Hepatocellular carcinoma
     Route: 042

REACTIONS (25)
  - Varicose vein ruptured [Unknown]
  - Gastric ulcer [Unknown]
  - Diverticulum intestinal haemorrhagic [Unknown]
  - Gastrointestinal perforation [Unknown]
  - Ascites [Unknown]
  - Portal vein thrombosis [Unknown]
  - Stomatitis [Unknown]
  - Fatigue [Unknown]
  - Decreased appetite [Unknown]
  - Rash [Unknown]
  - Pruritus [Unknown]
  - Hypertension [Unknown]
  - Proteinuria [Unknown]
  - Acute kidney injury [Unknown]
  - Pyrexia [Unknown]
  - Oedema [Unknown]
  - Diarrhoea [Unknown]
  - Aspartate aminotransferase increased [Unknown]
  - Alanine aminotransferase increased [Unknown]
  - Thrombocytopenia [Unknown]
  - Hepatic encephalopathy [Unknown]
  - Gastric antral vascular ectasia [Unknown]
  - Interstitial lung disease [Unknown]
  - Thyroid disorder [Unknown]
  - Adrenal insufficiency [Unknown]
